FAERS Safety Report 5223584-2 (Version None)
Quarter: 2007Q1

REPORT INFORMATION
  Report Type: 
  Country: None (occurrence: None)
  Receive Date: 20070125
  Receipt Date: 20070119
  Transmission Date: 20070707
  Serious: Yes (Hospitalization)
  Sender: FDA-Public Use
  Company Number: 2007-00246

PATIENT
  Sex: Female
  Weight: 56 kg

DRUGS (3)
  1. FENTANYL CITRATE [Suspect]
     Indication: SPINAL ANAESTHESIA
     Dosage: 15 MCG, INTRATHECAL
     Route: 037
  2. MORPHINE SULFATE [Suspect]
     Indication: SPINAL ANAESTHESIA
  3. BUPIVACAINE [Suspect]
     Indication: SPINAL ANAESTHESIA
     Dosage: 11 MG, INTRATHECAL
     Route: 037

REACTIONS (3)
  - ATELECTASIS [None]
  - CAESAREAN SECTION [None]
  - DRUG EXPOSURE DURING PREGNANCY [None]
